FAERS Safety Report 9118413 (Version 1)
Quarter: 2013Q1

REPORT INFORMATION
  Report Type: Spontaneous
  Country: US (occurrence: None)
  Receive Date: 20130221
  Receipt Date: 20130221
  Transmission Date: 20140127
  Serious: Yes (Other)
  Sender: FDA-Public Use
  Company Number: None

PATIENT
  Age: 83 Year
  Sex: Female
  Weight: 81.65 kg

DRUGS (10)
  1. MICARDIS [Suspect]
     Indication: HYPERTENSION
     Route: 048
     Dates: start: 20130201, end: 20130207
  2. CRESTOR [Concomitant]
  3. COUMADIN [Concomitant]
  4. NORVASC [Concomitant]
  5. TYLENOL [Concomitant]
  6. NOSONEX [Concomitant]
  7. Q-VAR [Concomitant]
  8. EYE DROPS [Concomitant]
  9. ZANTAC [Concomitant]
  10. ZOLOFT [Concomitant]

REACTIONS (3)
  - Lip swelling [None]
  - Dyspnoea [None]
  - Oedema mouth [None]
